FAERS Safety Report 9446916 (Version 1)
Quarter: 2013Q3

REPORT INFORMATION
  Report Type: Spontaneous
  Country: US (occurrence: US)
  Receive Date: 20130807
  Receipt Date: 20130807
  Transmission Date: 20140515
  Serious: No
  Sender: FDA-Public Use
  Company Number: US-AMGEN-USASP2013050390

PATIENT
  Age: 4 Year
  Sex: Male
  Weight: 18.8 kg

DRUGS (1)
  1. ENBREL [Suspect]
     Indication: JUVENILE IDIOPATHIC ARTHRITIS
     Dosage: 15 MG, QWK
     Route: 065
     Dates: start: 20130320, end: 20130617

REACTIONS (1)
  - Aggression [Recovered/Resolved]
